FAERS Safety Report 4809248-5 (Version None)
Quarter: 2005Q4

REPORT INFORMATION
  Report Type: 
  Country: None (occurrence: None)
  Receive Date: 20051021
  Receipt Date: 20031020
  Transmission Date: 20060501
  Serious: Yes (Other)
  Sender: FDA-Public Use
  Company Number: GBS031013897

PATIENT
  Age: 53 Year
  Sex: Male

DRUGS (3)
  1. OLANZAPINE [Suspect]
     Indication: PSYCHOTIC DISORDER
     Dosage: 20 MG/UNKNOWN
     Dates: start: 19961119, end: 20030601
  2. LITHIUM [Concomitant]
  3. OMEPRAZOLE [Concomitant]

REACTIONS (3)
  - HAEMORRHAGE [None]
  - SKIN LACERATION [None]
  - THROMBOCYTOPENIA [None]
